FAERS Safety Report 11289203 (Version 1)
Quarter: 2015Q3

REPORT INFORMATION
  Report Type: Report from Study
  Country: US (occurrence: US)
  Receive Date: 20150721
  Receipt Date: 20150721
  Transmission Date: 20151125
  Serious: No
  Sender: FDA-Public Use
  Company Number: US-GLAXOSMITHKLINE-US2015GSK103773

PATIENT
  Sex: Female

DRUGS (1)
  1. FLUTICASONE FUROATE NASAL SPRAY [Suspect]
     Active Substance: FLUTICASONE FUROATE
     Indication: MULTIPLE ALLERGIES
     Dosage: UNK, U
     Route: 045

REACTIONS (1)
  - Nasal dryness [Unknown]
